FAERS Safety Report 8124850-3 (Version None)
Quarter: 2012Q1

REPORT INFORMATION
  Report Type: 
  Country: None (occurrence: None)
  Receive Date: 20120209
  Receipt Date: 20120131
  Transmission Date: 20120608
  Serious: Yes (Other)
  Sender: FDA-Public Use
  Company Number: CA-JNJFOC-20120201832

PATIENT
  Sex: Female

DRUGS (1)
  1. REMICADE [Suspect]
     Indication: CROHN'S DISEASE
     Route: 042
     Dates: start: 20120122

REACTIONS (7)
  - MALAISE [None]
  - MYALGIA [None]
  - ANORECTAL DISCOMFORT [None]
  - RECTAL SPASM [None]
  - INFLUENZA LIKE ILLNESS [None]
  - PYREXIA [None]
  - NIGHT SWEATS [None]
